FAERS Safety Report 26187423 (Version 2)
Quarter: 2025Q4

REPORT INFORMATION
  Report Type: Report from Study
  Country: US (occurrence: US)
  Receive Date: 20251222
  Receipt Date: 20251231
  Transmission Date: 20260117
  Serious: Yes (Other)
  Sender: PFIZER
  Company Number: US-PFIZER INC-PV202500138902

PATIENT
  Age: 6 Month
  Sex: Male
  Weight: 7.256 kg

DRUGS (2)
  1. NURTEC ODT [Suspect]
     Active Substance: RIMEGEPANT SULFATE
     Indication: Migraine
     Dosage: 75 MG, AS NEEDED (PRN)
     Route: 064
     Dates: start: 2020
  2. KETOPROFEN [Suspect]
     Active Substance: KETOPROFEN
     Indication: Migraine
     Dosage: 150 MG, AS NEEDED (PRN)
     Route: 064
     Dates: start: 2018

REACTIONS (2)
  - Maternal exposure during pregnancy [Recovered/Resolved]
  - Postnatal growth restriction [Recovered/Resolved]

NARRATIVE: CASE EVENT DATE: 20250519
